FAERS Safety Report 17163368 (Version 1)
Quarter: 2019Q4

REPORT INFORMATION
  Report Type: Spontaneous
  Country: US (occurrence: US)
  Receive Date: 20191217
  Receipt Date: 20191217
  Transmission Date: 20200122
  Serious: Yes (Hospitalization, Other)
  Sender: FDA-Public Use
  Company Number: US-ELI_LILLY_AND_COMPANY-US201912002935

PATIENT
  Age: 96 Year
  Sex: Female

DRUGS (3)
  1. FORTEO [Suspect]
     Active Substance: TERIPARATIDE
     Indication: BONE DISORDER
     Dosage: UNK UNK, UNKNOWN
     Route: 058
     Dates: start: 20191017
  2. ELIQUIS [Concomitant]
     Active Substance: APIXABAN
     Indication: PRODUCT USED FOR UNKNOWN INDICATION
  3. CARDIZEM [Concomitant]
     Active Substance: DILTIAZEM HYDROCHLORIDE
     Indication: PRODUCT USED FOR UNKNOWN INDICATION

REACTIONS (10)
  - Fluid retention [Unknown]
  - Sepsis [Unknown]
  - Cervical vertebral fracture [Unknown]
  - Atrial fibrillation [Unknown]
  - Visual impairment [Unknown]
  - Incorrect product administration duration [Unknown]
  - Arrhythmia [Unknown]
  - Femur fracture [Unknown]
  - Spinal fracture [Unknown]
  - Injection site injury [Unknown]
